FAERS Safety Report 20834417 (Version 2)
Quarter: 2022Q2

REPORT INFORMATION
  Report Type: Spontaneous
  Country: CZ (occurrence: CZ)
  Receive Date: 20220516
  Receipt Date: 20220623
  Transmission Date: 20220720
  Serious: Yes (Death, Hospitalization)
  Sender: FDA-Public Use
  Company Number: CZ-TEVA-2022-CZ-2037070

PATIENT
  Age: 44 Year
  Sex: Male

DRUGS (1)
  1. VERAPAMIL [Suspect]
     Active Substance: VERAPAMIL HYDROCHLORIDE
     Indication: Suicide attempt
     Dosage: VERAPAMIL INGESTED EXCEEDED MORE THAN SEVEN TIMES THE LETHAL DOSE
     Route: 048

REACTIONS (14)
  - Alkalosis hypochloraemic [Recovering/Resolving]
  - Bradycardia [Fatal]
  - Renal failure [Unknown]
  - Hypotension [Fatal]
  - Hypokalaemia [Recovering/Resolving]
  - Toxicity to various agents [Fatal]
  - Intentional overdose [Fatal]
  - Cardiac arrest [Fatal]
  - Nausea [Unknown]
  - Vomiting [Unknown]
  - Somnolence [Unknown]
  - Junctional ectopic tachycardia [Fatal]
  - Completed suicide [Fatal]
  - Polyuria [Unknown]
